FAERS Safety Report 16967021 (Version 2)
Quarter: 2019Q4

REPORT INFORMATION
  Report Type: Spontaneous
  Country: US (occurrence: US)
  Receive Date: 20191028
  Receipt Date: 20191108
  Transmission Date: 20200122
  Serious: Yes (Death, Other)
  Sender: FDA-Public Use
  Company Number: US-INCYTE CORPORATION-2019IN010661

PATIENT

DRUGS (1)
  1. JAKAFI [Suspect]
     Active Substance: RUXOLITINIB
     Indication: POLYCYTHAEMIA VERA
     Dosage: 20 MILLIGRAM, QD
     Route: 048
     Dates: start: 20161208

REACTIONS (7)
  - Pneumonia pseudomonal [Fatal]
  - Tongue neoplasm malignant stage unspecified [Unknown]
  - Immune system disorder [Unknown]
  - Blood creatinine increased [Unknown]
  - Acute kidney injury [Fatal]
  - Acute respiratory failure [Fatal]
  - Diabetes mellitus [Unknown]
